FAERS Safety Report 6714200-9 (Version None)
Quarter: 2010Q2

REPORT INFORMATION
  Report Type: 
  Country: None (occurrence: None)
  Receive Date: 20100506
  Receipt Date: 20100504
  Transmission Date: 20101027
  Serious: Yes (Other)
  Sender: FDA-Public Use
  Company Number: IE-WYE-G06074910

PATIENT
  Sex: Female

DRUGS (6)
  1. EFFEXOR [Suspect]
     Indication: DRUG USE FOR UNKNOWN INDICATION
     Route: 048
     Dates: start: 20100419, end: 20100420
  2. SOLPADOL [Concomitant]
     Dosage: UNKNOWN
  3. PROTHIADEN [Concomitant]
     Dosage: UNKNOWN
  4. CAPRIN [Concomitant]
     Dosage: 75MG TABLETS, FREQUENCY UNSPECIFIED
  5. BISOPROLOL FUMARATE [Concomitant]
     Dosage: UNKNOWN
  6. XANAX [Concomitant]
     Dosage: UNKNOWN

REACTIONS (3)
  - FEELING OF BODY TEMPERATURE CHANGE [None]
  - NAUSEA [None]
  - RETCHING [None]
